FAERS Safety Report 10089366 (Version 1)
Quarter: 2014Q2

REPORT INFORMATION
  Report Type: Spontaneous
  Country: AU (occurrence: AU)
  Receive Date: 20140421
  Receipt Date: 20140421
  Transmission Date: 20141212
  Serious: Yes (Hospitalization)
  Sender: FDA-Public Use
  Company Number: AU-MYLANLABS-2014S1008189

PATIENT
  Sex: Male

DRUGS (4)
  1. THIOPRINE [Suspect]
     Indication: COLITIS ULCERATIVE
  2. THIOPRINE [Suspect]
     Indication: COLITIS ULCERATIVE
  3. PENTASA [Concomitant]
     Indication: PRODUCT USED FOR UNKNOWN INDICATION
  4. SOMAC [Concomitant]
     Indication: PRODUCT USED FOR UNKNOWN INDICATION

REACTIONS (4)
  - Chills [Recovering/Resolving]
  - Tremor [Recovering/Resolving]
  - Pyrexia [Recovering/Resolving]
  - Infection susceptibility increased [Recovering/Resolving]
